FAERS Safety Report 20896856 (Version 1)
Quarter: 2022Q2

REPORT INFORMATION
  Report Type: Report from Study
  Country: US (occurrence: US)
  Receive Date: 20220531
  Receipt Date: 20220531
  Transmission Date: 20220721
  Serious: Yes (Hospitalization)
  Sender: FDA-Public Use
  Company Number: US-BRISTOL-MYERS SQUIBB COMPANY-2022-047491

PATIENT
  Age: 59 Year
  Sex: Male
  Weight: 55.1 kg

DRUGS (4)
  1. NIVOLUMAB [Suspect]
     Active Substance: NIVOLUMAB
     Indication: Hodgkin^s disease
     Dosage: TOTAL DOSE ADMINISTERED: 240 MG
     Route: 065
     Dates: start: 20220506, end: 20220506
  2. DACARBAZINE [Suspect]
     Active Substance: DACARBAZINE
     Indication: Hodgkin^s disease
     Dosage: TOTAL DOSE ADMINISTERED: 650 MG
     Route: 065
     Dates: start: 20220505, end: 20220505
  3. DOXORUBICIN HYDROCHLORIDE [Suspect]
     Active Substance: DOXORUBICIN HYDROCHLORIDE
     Indication: Hodgkin^s disease
     Dosage: TOTAL DOSE ADMINISTERED: 44 MG
     Route: 065
     Dates: start: 20220505, end: 20220505
  4. VINBLASTINE SULFATE [Suspect]
     Active Substance: VINBLASTINE SULFATE
     Indication: Hodgkin^s disease
     Dosage: TOTAL DOSE ADMINISTERED: 10 MG
     Route: 065
     Dates: start: 20220505, end: 20220505

REACTIONS (1)
  - Hypercalcaemia [Recovered/Resolved]

NARRATIVE: CASE EVENT DATE: 20220510
